FAERS Safety Report 9486632 (Version 2)
Quarter: 2013Q3

REPORT INFORMATION
  Report Type: Spontaneous
  Country: JP (occurrence: JP)
  Receive Date: 20130829
  Receipt Date: 20130906
  Transmission Date: 20140515
  Serious: Yes (Other)
  Sender: FDA-Public Use
  Company Number: JP-PFIZER INC-2013244469

PATIENT
  Age: 67 Year
  Sex: Female

DRUGS (3)
  1. XALATAN [Suspect]
     Indication: GLAUCOMA
     Dosage: UNK
     Route: 047
     Dates: start: 20130720
  2. HYALEIN [Concomitant]
     Route: 047
  3. DIQUAS [Concomitant]
     Route: 047

REACTIONS (1)
  - Conjunctival haemorrhage [Unknown]
